FAERS Safety Report 23487274 (Version 3)
Quarter: 2024Q1

REPORT INFORMATION
  Report Type: Spontaneous
  Country: NG (occurrence: NG)
  Receive Date: 20240206
  Receipt Date: 20240212
  Transmission Date: 20240409
  Serious: Yes (Hospitalization, Other)
  Sender: FDA-Public Use
  Company Number: NG-002147023-NVSC2024NG024356

PATIENT
  Sex: Male

DRUGS (1)
  1. VOLTAREN [Suspect]
     Active Substance: DICLOFENAC SODIUM
     Indication: Ear pain
     Dosage: UNK (100MG TABLET AFTER 2HRS INTERVAL OF TOTAL 4 TABLETS AND 1 TABLET OF 50MG) (TOOK FOUR TABLETS IN
     Route: 048
     Dates: start: 20231226, end: 20231227

REACTIONS (4)
  - Skin reaction [Recovering/Resolving]
  - Ear infection [Unknown]
  - Ear pain [Recovering/Resolving]
  - Counterfeit product administered [Unknown]

NARRATIVE: CASE EVENT DATE: 20240106
